FAERS Safety Report 6303417-3 (Version None)
Quarter: 2009Q3

REPORT INFORMATION
  Report Type: 
  Country: None (occurrence: None)
  Receive Date: 20090810
  Receipt Date: 20090729
  Transmission Date: 20100115
  Serious: Yes (Death, Hospitalization, Other)
  Sender: FDA-Public Use
  Company Number: JP-PFIZER INC-2009202223

PATIENT
  Age: 62 Year

DRUGS (3)
  1. SULPERAZON [Suspect]
     Indication: CHOLANGITIS
     Dosage: 1 G, 2X/DAY
     Dates: start: 20090410, end: 20090420
  2. BIAPENEM [Concomitant]
     Route: 042
     Dates: start: 20090420, end: 20090426
  3. GARENOXACIN MESILATE [Concomitant]
     Route: 042
     Dates: start: 20090427

REACTIONS (1)
  - INTERSTITIAL LUNG DISEASE [None]
